FAERS Safety Report 19347185 (Version 1)
Quarter: 2021Q2

REPORT INFORMATION
  Report Type: Spontaneous
  Country: PK (occurrence: PK)
  Receive Date: 20210531
  Receipt Date: 20210531
  Transmission Date: 20210717
  Serious: Yes (Death)
  Sender: FDA-Public Use
  Company Number: PK-CYCLE PHARMACEUTICALS LTD-2021-CYC-000016

PATIENT

DRUGS (1)
  1. NITYR [Suspect]
     Active Substance: NITISINONE
     Indication: TYROSINAEMIA
     Dosage: UNK
     Route: 065

REACTIONS (2)
  - Death [Fatal]
  - Malaise [Unknown]
